FAERS Safety Report 15368320 (Version 1)
Quarter: 2018Q3

REPORT INFORMATION
  Report Type: Report from Study
  Country: NL (occurrence: NL)
  Receive Date: 20180910
  Receipt Date: 20180910
  Transmission Date: 20181010
  Serious: Yes (Hospitalization)
  Sender: FDA-Public Use
  Company Number: NL-ACTELION-A-NJ2018-178544

PATIENT
  Age: 24 Year
  Sex: Female

DRUGS (9)
  1. FLIXONASE [Concomitant]
     Active Substance: FLUTICASONE PROPIONATE
  2. VENTAVIS [Suspect]
     Active Substance: ILOPROST
     Indication: PULMONARY ARTERIAL HYPERTENSION
     Dosage: UNK
     Route: 055
     Dates: start: 20180817
  3. SALBUTAMOL [Concomitant]
     Active Substance: ALBUTEROL
  4. ANTAGEL [Concomitant]
  5. ESOMEPRAZOLE [Concomitant]
     Active Substance: ESOMEPRAZOLE
  6. MOMETASONE [Concomitant]
     Active Substance: MOMETASONE
  7. FOSTER [Concomitant]
     Active Substance: BECLOMETHASONE\FORMOTEROL
  8. NACL [Concomitant]
     Active Substance: SODIUM CHLORIDE
  9. IMMUNOGLOBULIN G HUMAN [Concomitant]
     Active Substance: HUMAN IMMUNOGLOBULIN G

REACTIONS (1)
  - Hospitalisation [Not Recovered/Not Resolved]
